FAERS Safety Report 19243049 (Version 21)
Quarter: 2023Q1

REPORT INFORMATION
  Report Type: Report from Study
  Country: CA (occurrence: CA)
  Receive Date: 20210511
  Receipt Date: 20230307
  Transmission Date: 20230417
  Serious: Yes (Hospitalization, Other)
  Sender: FDA-Public Use
  Company Number: CA-002147023-NVSC2020CA281460

PATIENT

DRUGS (10)
  1. DICLOFENAC [Suspect]
     Active Substance: DICLOFENAC
     Indication: Product used for unknown indication
     Dosage: UNK
     Route: 048
  2. SANDOSTATIN LAR DEPOT [Suspect]
     Active Substance: OCTREOTIDE ACETATE
     Indication: Carcinoid tumour
     Dosage: 30 MG (30 MG, Q4W)
     Route: 030
     Dates: start: 20200925, end: 202209
  3. SANDOSTATIN LAR DEPOT [Suspect]
     Active Substance: OCTREOTIDE ACETATE
     Dosage: 30 MG (30 MG, Q4W)
     Route: 030
     Dates: start: 20221025
  4. COSENTYX [Suspect]
     Active Substance: SECUKINUMAB
     Indication: Product used for unknown indication
     Dosage: 150 MG
     Route: 058
     Dates: start: 201907, end: 201911
  5. CORTISONE ACETATE [Concomitant]
     Active Substance: CORTISONE ACETATE
     Indication: Rheumatoid arthritis
     Dosage: UNK
     Route: 065
  6. ACETAMINOPHEN\TRAMADOL [Concomitant]
     Active Substance: ACETAMINOPHEN\TRAMADOL
     Indication: Product used for unknown indication
     Dosage: UNK
     Route: 065
  7. HUMIRA [Concomitant]
     Active Substance: ADALIMUMAB
     Indication: Product used for unknown indication
     Dosage: UNK
     Route: 065
     Dates: start: 2016, end: 201907
  8. PREDNISONE [Concomitant]
     Active Substance: PREDNISONE
     Indication: Product used for unknown indication
     Dosage: UNK
     Route: 065
  9. METHOTREXATE [Concomitant]
     Active Substance: METHOTREXATE
     Indication: Product used for unknown indication
     Dosage: UNK
     Route: 058
  10. DILAUDID [Concomitant]
     Active Substance: HYDROMORPHONE HYDROCHLORIDE
     Indication: Product used for unknown indication
     Dosage: UNK
     Route: 065

REACTIONS (28)
  - Hip fracture [Not Recovered/Not Resolved]
  - Rheumatoid arthritis [Unknown]
  - Small intestinal obstruction [Recovering/Resolving]
  - Sepsis [Unknown]
  - Fall [Unknown]
  - Abnormal faeces [Recovered/Resolved]
  - Oedema peripheral [Unknown]
  - Pain in extremity [Unknown]
  - Arthralgia [Unknown]
  - Gastrointestinal infection [Unknown]
  - Malaise [Unknown]
  - Gait inability [Unknown]
  - Asthenia [Unknown]
  - Post procedural infection [Unknown]
  - White blood cell count increased [Unknown]
  - Mobility decreased [Unknown]
  - Needle issue [Unknown]
  - Injection site pain [Recovered/Resolved]
  - Epistaxis [Unknown]
  - Blood pressure increased [Unknown]
  - Blood pressure systolic increased [Unknown]
  - Decubitus ulcer [Unknown]
  - Rash erythematous [Unknown]
  - Erythema [Unknown]
  - Skin atrophy [Unknown]
  - Psoriasis [Unknown]
  - Cognitive disorder [Unknown]
  - Renal disorder [Unknown]

NARRATIVE: CASE EVENT DATE: 20200926
